FAERS Safety Report 4405007-6 (Version None)
Quarter: 2004Q3

REPORT INFORMATION
  Report Type: 
  Country: None (occurrence: None)
  Receive Date: 20040716
  Receipt Date: 20040701
  Transmission Date: 20050211
  Serious: Yes (Hospitalization, Other)
  Sender: FDA-Public Use
  Company Number: US-JNJFOC-20040301627

PATIENT
  Age: 62 Year
  Sex: Female
  Weight: 43.0917 kg

DRUGS (29)
  1. REMICADE [Suspect]
     Indication: RHEUMATOID ARTHRITIS
     Dosage: SEE IMAGE INTRAVENOUS
     Route: 042
     Dates: start: 20020410
  2. REMICADE [Suspect]
     Indication: RHEUMATOID ARTHRITIS
     Dosage: SEE IMAGE INTRAVENOUS
     Route: 042
     Dates: start: 20020424
  3. REMICADE [Suspect]
     Indication: RHEUMATOID ARTHRITIS
     Dosage: SEE IMAGE INTRAVENOUS
     Route: 042
     Dates: start: 20020522
  4. REMICADE [Suspect]
     Indication: RHEUMATOID ARTHRITIS
     Dosage: SEE IMAGE INTRAVENOUS
     Route: 042
     Dates: start: 20020717
  5. REMICADE [Suspect]
     Indication: RHEUMATOID ARTHRITIS
     Dosage: SEE IMAGE INTRAVENOUS
     Route: 042
     Dates: start: 20020911
  6. REMICADE [Suspect]
     Indication: RHEUMATOID ARTHRITIS
     Dosage: SEE IMAGE INTRAVENOUS
     Route: 042
     Dates: start: 20021106
  7. REMICADE [Suspect]
     Indication: RHEUMATOID ARTHRITIS
     Dosage: SEE IMAGE INTRAVENOUS
     Route: 042
     Dates: start: 20030103
  8. REMICADE [Suspect]
     Indication: RHEUMATOID ARTHRITIS
     Dosage: SEE IMAGE INTRAVENOUS
     Route: 042
     Dates: start: 20030224
  9. REMICADE [Suspect]
     Indication: RHEUMATOID ARTHRITIS
     Dosage: SEE IMAGE INTRAVENOUS
     Route: 042
     Dates: start: 20030423
  10. REMICADE [Suspect]
     Indication: RHEUMATOID ARTHRITIS
     Dosage: SEE IMAGE INTRAVENOUS
     Route: 042
     Dates: start: 20030618
  11. REMICADE [Suspect]
  12. REMICADE [Suspect]
  13. REMICADE [Suspect]
  14. REMICADE [Suspect]
  15. REMICADE [Suspect]
  16. REMICADE [Suspect]
  17. REMICADE [Suspect]
  18. REMICADE [Suspect]
  19. METHOTREXATE [Suspect]
     Indication: RHEUMATOID ARTHRITIS
     Dosage: SEE IMAGE
     Dates: start: 20030721
  20. SULFATE (FERROUS SULFATE) [Concomitant]
  21. FOLIC ACID [Concomitant]
  22. DARVOCET [Concomitant]
  23. DOXEPIN HCL [Concomitant]
  24. PREMARIN (ESTROGENS CONJUGATED) CREAM [Concomitant]
  25. PROVERA [Concomitant]
  26. SULFASALAZINE [Concomitant]
  27. FOSAMAX [Concomitant]
  28. SALSALATE (SALSALATE) [Concomitant]
  29. CALCIUM WITH VITAMIN D (CALCIUM WITH VITAMIN D) [Concomitant]

REACTIONS (25)
  - ABSCESS [None]
  - ANOREXIA [None]
  - ARRHYTHMIA [None]
  - ASPARTATE AMINOTRANSFERASE INCREASED [None]
  - BRONCHITIS [None]
  - CATARACT OPERATION [None]
  - CELLULITIS [None]
  - CHEMOTHERAPEUTIC DRUG LEVEL DECREASED [None]
  - CHILLS [None]
  - CONDITION AGGRAVATED [None]
  - FALL [None]
  - GASTROOESOPHAGEAL REFLUX DISEASE [None]
  - HAEMOGLOBIN DECREASED [None]
  - INFUSION RELATED REACTION [None]
  - LUNG INFILTRATION [None]
  - LUNG NEOPLASM [None]
  - LUPUS-LIKE SYNDROME [None]
  - OSTEOPOROSIS [None]
  - PALPITATIONS [None]
  - PERICARDITIS [None]
  - PYREXIA [None]
  - RED BLOOD CELL SEDIMENTATION RATE INCREASED [None]
  - REFLUX OESOPHAGITIS [None]
  - RHEUMATOID ARTHRITIS [None]
  - WEIGHT DECREASED [None]
